FAERS Safety Report 4972265-9 (Version None)
Quarter: 2006Q1

REPORT INFORMATION
  Report Type: 
  Country: None (occurrence: None)
  Receive Date: 20060210
  Receipt Date: 20060125
  Transmission Date: 20060701
  Serious: Yes (Other)
  Sender: FDA-Public Use
  Company Number: 2006-US-00515

PATIENT
  Age: 71 Year
  Sex: Male

DRUGS (2)
  1. INDOMETHACIN [Suspect]
     Indication: GOUT
     Dosage: 50 MG, TID, ORAL
     Route: 048
     Dates: start: 19850101, end: 20051201
  2. ATENOLOL [Concomitant]

REACTIONS (3)
  - ABDOMINAL PAIN UPPER [None]
  - POLLAKIURIA [None]
  - RENAL IMPAIRMENT [None]
